FAERS Safety Report 7492213-X (Version None)
Quarter: 2011Q2

REPORT INFORMATION
  Report Type: 
  Country: None (occurrence: None)
  Receive Date: 20110519
  Receipt Date: 20101115
  Transmission Date: 20111010
  Serious: No
  Sender: FDA-Public Use
  Company Number: US-NOVEN-ALL1-2010-05288

PATIENT
  Sex: Female
  Weight: 25.85 kg

DRUGS (3)
  1. DAYTRANA [Suspect]
     Dosage: 20 MG, 1X/DAY:QD
     Route: 062
     Dates: start: 20100630, end: 20100701
  2. DAYTRANA [Suspect]
     Dosage: UNK MG, 1X/DAY:QD
     Route: 062
     Dates: start: 20101001
  3. DAYTRANA [Suspect]
     Dosage: UNK MG, 1X/DAY:QD
     Route: 062
     Dates: start: 20100701, end: 20101001

REACTIONS (5)
  - DERMATILLOMANIA [None]
  - PRURITUS [None]
  - WEIGHT DECREASED [None]
  - DECREASED APPETITE [None]
  - APPLICATION SITE DRYNESS [None]
